FAERS Safety Report 15506577 (Version 2)
Quarter: 2018Q4

REPORT INFORMATION
  Report Type: Report from Study
  Country: US (occurrence: US)
  Receive Date: 20181016
  Receipt Date: 20181112
  Transmission Date: 20190205
  Serious: No
  Sender: FDA-Public Use
  Company Number: PHEH2018US043548

PATIENT
  Sex: Male
  Weight: 54.42 kg

DRUGS (1)
  1. ILARIS [Suspect]
     Active Substance: CANAKINUMAB
     Indication: PYREXIA
     Dosage: 150 MG, Q4 WEEKS
     Route: 058
     Dates: start: 201810

REACTIONS (1)
  - Inappropriate schedule of product administration [Unknown]
